FAERS Safety Report 17488074 (Version 1)
Quarter: 2020Q1

REPORT INFORMATION
  Report Type: Spontaneous
  Country: US (occurrence: US)
  Receive Date: 20200220
  Receipt Date: 20200220
  Transmission Date: 20200409
  Serious: No
  Sender: FDA-Public Use
  Company Number: None

PATIENT
  Age: 31 Year
  Sex: Male

DRUGS (1)
  1. MAVYRET [Suspect]
     Active Substance: GLECAPREVIR\PIBRENTASVIR
     Dosage: ?          OTHER DOSE:100/400MG;OTHER FREQUENCY:OTHER;?
     Route: 048
     Dates: start: 20190120

REACTIONS (3)
  - Myalgia [None]
  - Therapy cessation [None]
  - Product use issue [None]

NARRATIVE: CASE EVENT DATE: 20190210
